FAERS Safety Report 5137323-7 (Version None)
Quarter: 2006Q4

REPORT INFORMATION
  Report Type: 
  Country: None (occurrence: None)
  Receive Date: 20061030
  Receipt Date: 20051011
  Transmission Date: 20070319
  Serious: No
  Sender: FDA-Public Use
  Company Number: US-GLAXOSMITHKLINE-A0577834A

PATIENT
  Age: 12 Year
  Sex: Male

DRUGS (2)
  1. ADVAIR HFA [Suspect]
     Indication: ASTHMA
     Dosage: 1PUFF PER DAY
     Route: 055
     Dates: start: 20001001
  2. NO CONCURRENT MEDICATION [Concomitant]

REACTIONS (4)
  - COELIAC DISEASE [None]
  - GROWTH RETARDATION [None]
  - WEIGHT DECREASED [None]
  - WEIGHT GAIN POOR [None]
